FAERS Safety Report 7264644-4 (Version None)
Quarter: 2011Q1

REPORT INFORMATION
  Report Type: 
  Country: None (occurrence: None)
  Receive Date: 20110119
  Receipt Date: 20110104
  Transmission Date: 20110831
  Serious: Yes (Other)
  Sender: FDA-Public Use
  Company Number: 024897

PATIENT
  Sex: Female

DRUGS (4)
  1. METOCLOPRAMIDE [Suspect]
  2. CIMZIA [Suspect]
     Indication: OFF LABEL USE
     Dosage: (SUBCUTANEOUS)
     Route: 058
     Dates: end: 20090123
  3. REMICADE [Suspect]
     Indication: COLITIS ULCERATIVE
     Dosage: (INTRAVENOUS (NOT OTHERWISE SPECIFIED))
     Route: 042
     Dates: start: 20070620, end: 20080101
  4. CORTICOSTEROID NOS [Concomitant]

REACTIONS (29)
  - LUPUS-LIKE SYNDROME [None]
  - NERVOUS SYSTEM DISORDER [None]
  - RASH GENERALISED [None]
  - HYPERSOMNIA [None]
  - HEAD DISCOMFORT [None]
  - NAUSEA [None]
  - OFF LABEL USE [None]
  - SWELLING FACE [None]
  - DIZZINESS [None]
  - VOMITING [None]
  - EYE DISORDER [None]
  - CORNEAL REFLEX DECREASED [None]
  - DECREASED VIBRATORY SENSE [None]
  - COORDINATION ABNORMAL [None]
  - LOCAL SWELLING [None]
  - ARTHRALGIA [None]
  - ANTINUCLEAR ANTIBODY POSITIVE [None]
  - BACK PAIN [None]
  - CEREBELLAR SYNDROME [None]
  - ENCEPHALITIS [None]
  - ARTHRITIS [None]
  - ALOPECIA [None]
  - SERUM SICKNESS [None]
  - NYSTAGMUS [None]
  - JOINT RANGE OF MOTION DECREASED [None]
  - FATIGUE [None]
  - MOUTH ULCERATION [None]
  - HISTONE ANTIBODY POSITIVE [None]
  - SENSORY DISTURBANCE [None]
